FAERS Safety Report 6493576-4 (Version None)
Quarter: 2009Q4

REPORT INFORMATION
  Report Type: 
  Country: None (occurrence: None)
  Receive Date: 20091214
  Receipt Date: 20091207
  Transmission Date: 20100525
  Serious: Yes (Hospitalization, Other)
  Sender: FDA-Public Use
  Company Number: US-RB-026136-09

PATIENT
  Age: 54 Year
  Sex: Male

DRUGS (3)
  1. SUBOXONE [Suspect]
     Route: 060
     Dates: start: 20090301
  2. NEURONTIN [Concomitant]
     Dosage: UNKNOWN DOSING
     Route: 065
  3. TEGRETOL [Concomitant]
     Dosage: UNKNOWN DOSE
     Route: 065

REACTIONS (2)
  - CONFUSIONAL STATE [None]
  - CONVULSION [None]
